FAERS Safety Report 14630864 (Version 2)
Quarter: 2018Q1

REPORT INFORMATION
  Report Type: Report from Study
  Country: IT (occurrence: IT)
  Receive Date: 20180313
  Receipt Date: 20180330
  Transmission Date: 20180509
  Serious: Yes (Other)
  Sender: FDA-Public Use
  Company Number: IT-SA-2018SA031448

PATIENT
  Age: 39 Year
  Sex: Female
  Weight: 77 kg

DRUGS (7)
  1. DELTACORTENE [Suspect]
     Active Substance: PREDNISONE
     Route: 048
     Dates: start: 20180116
  2. SAR231893 [Suspect]
     Active Substance: DUPILUMAB
     Indication: ASTHMA
     Route: 058
     Dates: start: 20170110, end: 20170110
  3. VENTOLIN [Suspect]
     Active Substance: ALBUTEROL SULFATE
     Indication: ASTHMA
     Dosage: (TOTAL DAILY DOSE: 1 PRN PUFF)
     Route: 055
     Dates: start: 20151127, end: 20170109
  4. TIOTROPIUM [Concomitant]
     Active Substance: TIOTROPIUM
     Route: 055
     Dates: start: 20170110
  5. SAR231893 [Suspect]
     Active Substance: DUPILUMAB
     Indication: ASTHMA
     Route: 058
     Dates: start: 20170123, end: 20171110
  6. FOSTER [Suspect]
     Active Substance: BECLOMETHASONE\FORMOTEROL
     Indication: ASTHMA
     Route: 055
     Dates: start: 20170110
  7. VENTOLIN [Suspect]
     Active Substance: ALBUTEROL SULFATE
     Indication: ASTHMA
     Dosage: (TOTAL DAILY DOSE: 1 PRN PUFF)
     Route: 055
     Dates: start: 20170110

REACTIONS (1)
  - Eosinophilic granulomatosis with polyangiitis [Not Recovered/Not Resolved]

NARRATIVE: CASE EVENT DATE: 20180122
